FAERS Safety Report 7585270-3 (Version None)
Quarter: 2011Q2

REPORT INFORMATION
  Report Type: 
  Country: None (occurrence: None)
  Receive Date: 20110629
  Receipt Date: 20110629
  Transmission Date: 20111010
  Serious: Yes (Disabling)
  Sender: FDA-Public Use
  Company Number: None

PATIENT
  Sex: Female
  Weight: 60.5 kg

DRUGS (1)
  1. CIPROFLOXACIN [Suspect]
     Indication: CYSTITIS
     Dosage: 1 TABLET BID ORALLY (UNTIL GONE)
     Route: 048
     Dates: start: 20110101

REACTIONS (6)
  - ABASIA [None]
  - EPICONDYLITIS [None]
  - ARTHROPATHY [None]
  - TENDON INJURY [None]
  - OEDEMA PERIPHERAL [None]
  - PAIN [None]
